FAERS Safety Report 13576291 (Version 3)
Quarter: 2020Q2

REPORT INFORMATION
  Report Type: Spontaneous
  Country: DE (occurrence: DE)
  Receive Date: 20170524
  Receipt Date: 20200616
  Transmission Date: 20200713
  Serious: Yes (Hospitalization, Other)
  Sender: FDA-Public Use
  Company Number: DE-DRREDDYS-USA/GER/17/0090816

PATIENT
  Age: 54 Year
  Sex: Female

DRUGS (11)
  1. OLANZAPINE. [Suspect]
     Active Substance: OLANZAPINE
     Indication: SCHIZOAFFECTIVE DISORDER
     Route: 065
     Dates: start: 2012
  2. VALPROIC ACID. [Interacting]
     Active Substance: VALPROIC ACID
  3. QUETIAPINE. [Suspect]
     Active Substance: QUETIAPINE
     Indication: SCHIZOAFFECTIVE DISORDER
     Dosage: NON-SUSTAINED-RELEASE
     Route: 065
  4. QUETIAPINE. [Interacting]
     Active Substance: QUETIAPINE
     Dosage: XR
     Dates: start: 2014
  5. SERTRALINE [Suspect]
     Active Substance: SERTRALINE HYDROCHLORIDE
  6. QUETIAPINE. [Interacting]
     Active Substance: QUETIAPINE
     Dosage: XR
     Dates: start: 2014
  7. SERTRALINE [Suspect]
     Active Substance: SERTRALINE HYDROCHLORIDE
     Indication: SCHIZOAFFECTIVE DISORDER
  8. MIRTAZAPINE. [Suspect]
     Active Substance: MIRTAZAPINE
     Indication: SCHIZOAFFECTIVE DISORDER
     Dates: start: 2012
  9. QUETIAPINE. [Interacting]
     Active Substance: QUETIAPINE
     Dosage: XR
     Dates: start: 2014
  10. VALPROIC ACID. [Interacting]
     Active Substance: VALPROIC ACID
     Indication: SCHIZOAFFECTIVE DISORDER
  11. ARIPIPRAZOLE. [Suspect]
     Active Substance: ARIPIPRAZOLE
     Indication: SCHIZOAFFECTIVE DISORDER

REACTIONS (13)
  - Therapeutic response decreased [Unknown]
  - Dizziness [Recovering/Resolving]
  - Muscle rigidity [Recovering/Resolving]
  - Visual acuity reduced [Recovering/Resolving]
  - Cognitive disorder [Recovering/Resolving]
  - Extrapyramidal disorder [Unknown]
  - Drug interaction [Unknown]
  - Gait disturbance [Recovering/Resolving]
  - Memory impairment [Recovering/Resolving]
  - Tremor [Recovering/Resolving]
  - Balance disorder [Recovering/Resolving]
  - Psychotic disorder [Unknown]
  - Depression [Unknown]
